FAERS Safety Report 19480900 (Version 2)
Quarter: 2022Q3

REPORT INFORMATION
  Report Type: Spontaneous
  Country: FI (occurrence: FI)
  Receive Date: 20210630
  Receipt Date: 20220901
  Transmission Date: 20221027
  Serious: Yes (Other)
  Sender: FDA-Public Use
  Company Number: FI-NOVARTISPH-NVSC2021FI143015

PATIENT
  Sex: Male

DRUGS (1)
  1. ENALAPRIL MALEATE [Suspect]
     Active Substance: ENALAPRIL MALEATE
     Indication: Blood pressure measurement
     Dosage: UNK (STARTED BEFORE 3 YEARS)
     Route: 065

REACTIONS (2)
  - Neovascular age-related macular degeneration [Unknown]
  - Vision blurred [Unknown]
